FAERS Safety Report 24727883 (Version 1)
Quarter: 2024Q4

REPORT INFORMATION
  Report Type: Spontaneous
  Country: US (occurrence: None)
  Receive Date: 20241212
  Receipt Date: 20241212
  Transmission Date: 20250115
  Serious: No
  Sender: Public
  Company Number: None

PATIENT
  Age: 72 Year
  Sex: Male

DRUGS (2)
  1. TRIAMCINOLONE ACETONIDE [Suspect]
     Active Substance: TRIAMCINOLONE ACETONIDE
     Indication: Pain
     Dosage: OTHER FREQUENCY : ONCE;?
     Route: 030
     Dates: start: 20220925, end: 20220925
  2. KETOROLAC TROMETHAMINE [Suspect]
     Active Substance: KETOROLAC TROMETHAMINE
     Dosage: OTHER FREQUENCY : ONCE;?
     Route: 030
     Dates: start: 20220925, end: 20220925

REACTIONS (6)
  - Atrophy [None]
  - Myalgia [None]
  - Myalgia [None]
  - Neuropathy peripheral [None]
  - Asthenia [None]
  - Grip strength decreased [None]

NARRATIVE: CASE EVENT DATE: 20221219
